FAERS Safety Report 8301569-7 (Version None)
Quarter: 2012Q2

REPORT INFORMATION
  Report Type: 
  Country: None (occurrence: None)
  Receive Date: 20120420
  Receipt Date: 20120411
  Transmission Date: 20120825
  Serious: Yes (Hospitalization)
  Sender: FDA-Public Use
  Company Number: US-JNJFOC-20120405554

PATIENT
  Sex: Female
  Weight: 63.5 kg

DRUGS (1)
  1. RISPERDAL [Suspect]
     Indication: BIPOLAR DISORDER
     Route: 048
     Dates: start: 20020101, end: 20120201

REACTIONS (12)
  - HYPOTENSION [None]
  - TOOTH EXTRACTION [None]
  - DYSPHAGIA [None]
  - RETCHING [None]
  - VIRAL INFECTION [None]
  - CARDIAC DISORDER [None]
  - URINARY TRACT INFECTION [None]
  - ABDOMINAL PAIN UPPER [None]
  - EYE INFLAMMATION [None]
  - GINGIVAL DISORDER [None]
  - TOOTH LOSS [None]
  - TOOTHACHE [None]
